FAERS Safety Report 23976210 (Version 1)
Quarter: 2024Q2

REPORT INFORMATION
  Report Type: Spontaneous
  Country: US (occurrence: US)
  Receive Date: 20240614
  Receipt Date: 20240614
  Transmission Date: 20240716
  Serious: Yes (Death, Other)
  Sender: FDA-Public Use
  Company Number: US-AUROBINDO-AUR-APL-2024-028764

PATIENT
  Age: 18 Month
  Sex: Male

DRUGS (7)
  1. CARBOPLATIN [Suspect]
     Active Substance: CARBOPLATIN
     Indication: Central nervous system neoplasm
     Dosage: UNK UNK, CYCLICAL, 1 CYCLE
     Route: 065
  2. CYCLOPHOSPHAMIDE [Suspect]
     Active Substance: CYCLOPHOSPHAMIDE
     Indication: Central nervous system neoplasm
     Dosage: UNK UNK, CYCLICAL, 3 CYCLES
     Route: 065
  3. METHOTREXATE [Suspect]
     Active Substance: METHOTREXATE
     Indication: Central nervous system neoplasm
     Dosage: UNK UNK, CYCLICAL, 3 CYCLES
     Route: 065
  4. VINCRISTINE SULFATE [Suspect]
     Active Substance: VINCRISTINE SULFATE
     Indication: Central nervous system neoplasm
     Dosage: UNK UNK, CYCLICAL, 3 CYCLES
     Route: 065
  5. ETOPOSIDE [Suspect]
     Active Substance: ETOPOSIDE
     Indication: Central nervous system neoplasm
     Dosage: UNK UNK, CYCLICAL, 1 CYCLE
     Route: 065
  6. CISPLATIN [Suspect]
     Active Substance: CISPLATIN
     Indication: Central nervous system neoplasm
     Dosage: UNK UNK, CYCLICAL, 3 CYCLES
     Route: 065
  7. THIOTEPA [Suspect]
     Active Substance: THIOTEPA
     Indication: Central nervous system neoplasm
     Dosage: UNK UNK, CYCLICAL, 1 CYCLE
     Route: 065

REACTIONS (3)
  - Death [Fatal]
  - Venoocclusive liver disease [Unknown]
  - Hypotension [Unknown]
